FAERS Safety Report 9633275 (Version 1)
Quarter: 2013Q4

REPORT INFORMATION
  Report Type: Spontaneous
  Country: US (occurrence: None)
  Receive Date: 20131018
  Receipt Date: 20131018
  Transmission Date: 20140711
  Serious: Yes (Life-Threatening, Hospitalization)
  Sender: FDA-Public Use
  Company Number: None

PATIENT
  Age: 85 Year
  Sex: Female
  Weight: 72.58 kg

DRUGS (1)
  1. WARFARIN [Suspect]
     Indication: ATRIAL FIBRILLATION
     Dosage: 1 PILL
     Route: 048
     Dates: start: 20100101, end: 20130822

REACTIONS (7)
  - Abdominal discomfort [None]
  - Hypophagia [None]
  - Asthenia [None]
  - Pallor [None]
  - International normalised ratio increased [None]
  - Haemoglobin decreased [None]
  - Haematochezia [None]
